FAERS Safety Report 24809027 (Version 2)
Quarter: 2025Q3

REPORT INFORMATION
  Report Type: Report from Study
  Country: TW (occurrence: TW)
  Receive Date: 20250106
  Receipt Date: 20250802
  Transmission Date: 20251020
  Serious: Yes (Hospitalization, Other)
  Sender: ALEXION PHARMACEUTICALS
  Company Number: TW-AstraZeneca-CH-00776334A

PATIENT
  Sex: Male

DRUGS (6)
  1. DURVALUMAB [Suspect]
     Active Substance: DURVALUMAB
     Dates: start: 20220626, end: 20220626
  2. DURVALUMAB [Suspect]
     Active Substance: DURVALUMAB
     Dates: start: 20231020, end: 20231020
  3. DURVALUMAB [Suspect]
     Active Substance: DURVALUMAB
     Dosage: 1200 MILLIGRAM, QMONTH
     Dates: start: 20231121, end: 20231226
  4. DURVALUMAB [Suspect]
     Active Substance: DURVALUMAB
     Dates: start: 20240127, end: 20240127
  5. DURVALUMAB [Suspect]
     Active Substance: DURVALUMAB
     Dosage: 1200 MILLIGRAM, QMONTH
     Dates: start: 20240229, end: 20240916
  6. DURVALUMAB [Suspect]
     Active Substance: DURVALUMAB
     Dosage: 1440 MILLIGRAM, Q3W
     Dates: start: 20241101, end: 20241126

REACTIONS (1)
  - Brain neoplasm [Unknown]
